FAERS Safety Report 9817769 (Version 1)
Quarter: 2014Q1

REPORT INFORMATION
  Report Type: Spontaneous
  Country: CA (occurrence: CA)
  Receive Date: 20140115
  Receipt Date: 20140115
  Transmission Date: 20141002
  Serious: Yes (Other)
  Sender: FDA-Public Use
  Company Number: CA-ASTRAZENECA-2014SE01253

PATIENT
  Age: 81 Year
  Sex: Female

DRUGS (2)
  1. CRESTOR [Suspect]
     Route: 048
  2. VOLTAREN [Suspect]
     Dosage: 2 EVERY 1 DAY
     Route: 065

REACTIONS (6)
  - Arthritis [Unknown]
  - Blood pressure increased [Unknown]
  - Cataract [Unknown]
  - Condition aggravated [Unknown]
  - Therapeutic response unexpected [Unknown]
  - Incorrect drug administration duration [Unknown]
